FAERS Safety Report 4289751-X (Version None)
Quarter: 2004Q1

REPORT INFORMATION
  Report Type: 
  Country: None (occurrence: None)
  Receive Date: 20040210
  Receipt Date: 20031211
  Transmission Date: 20041129
  Serious: Yes (Other)
  Sender: FDA-Public Use
  Company Number: US-GLAXOSMITHKLINE-A0442807A

PATIENT
  Age: 9 Year
  Sex: Male
  Weight: 29.5 kg

DRUGS (2)
  1. WELLBUTRIN SR [Suspect]
     Indication: ATTENTION DEFICIT/HYPERACTIVITY DISORDER
     Dosage: 150MG PER DAY
     Route: 048
     Dates: start: 20031107, end: 20031115
  2. METADATE CD [Concomitant]
     Indication: ATTENTION DEFICIT/HYPERACTIVITY DISORDER
     Dosage: 20MG PER DAY
     Route: 048
     Dates: start: 20030101, end: 20031218

REACTIONS (2)
  - DEPRESSED LEVEL OF CONSCIOUSNESS [None]
  - GRAND MAL CONVULSION [None]
